FAERS Safety Report 5407592-4 (Version None)
Quarter: 2007Q3

REPORT INFORMATION
  Report Type: 
  Country: None (occurrence: None)
  Receive Date: 20070807
  Receipt Date: 20070731
  Transmission Date: 20080115
  Serious: Yes (Other)
  Sender: FDA-Public Use
  Company Number: JP-BOEHRINGER INGELHEIM PHARMACEUTICALS, INC.-2007-BP-18361NB

PATIENT
  Age: 78 Year
  Sex: Female

DRUGS (8)
  1. MOBIC [Suspect]
     Indication: POLYMYALGIA RHEUMATICA
     Route: 048
     Dates: start: 20070616, end: 20070629
  2. SIMVASTATIN [Suspect]
     Indication: HYPERLIPIDAEMIA
     Route: 048
     Dates: end: 20070714
  3. ACTONEL [Concomitant]
     Indication: OSTEOPOROSIS
     Route: 048
     Dates: end: 20070714
  4. GLIMICRON [Concomitant]
     Route: 048
  5. KINEDAK [Concomitant]
     Indication: DIABETES MELLITUS
     Route: 048
  6. METHYCOBAL [Concomitant]
     Route: 048
  7. ANPLAG [Concomitant]
     Route: 048
  8. DEPAS [Concomitant]
     Route: 048

REACTIONS (3)
  - BLOOD CREATINE PHOSPHOKINASE INCREASED [None]
  - GAIT DISTURBANCE [None]
  - MYALGIA [None]
